FAERS Safety Report 8790679 (Version 2)
Quarter: 2012Q4

REPORT INFORMATION
  Report Type: Spontaneous
  Country: US (occurrence: None)
  Receive Date: 20120830
  Receipt Date: 20120912
  Transmission Date: 20130627
  Serious: Yes (Hospitalization)
  Sender: FDA-Public Use
  Company Number: 2012033175

PATIENT
  Age: 46 Year
  Sex: Female
  Weight: 71 kg

DRUGS (2)
  1. PRIVIGEN (IMMUNE GLOBULIN INTRAVENOUS (HUMAN) 10% LIQUID) [Suspect]
     Indication: CHRONIC INFLAMMATORY DEMYELINATING POLYRADICULONEUROPATHY
     Dosage: total
     Route: 042
     Dates: start: 20120813, end: 20120813
  2. PRIVIGEN (IMMUNE GLOBULIN INTRAVENOUS (HUMAN) 10% LIQUID) [Suspect]
     Indication: CHRONIC INFLAMMATORY DEMYELINATING POLYRADICULONEUROPATHY
     Route: 042
     Dates: start: 20120416, end: 20120420

REACTIONS (6)
  - Headache [None]
  - Nausea [None]
  - Vomiting [None]
  - Dizziness [None]
  - Pyelonephritis [None]
  - Infusion related reaction [None]
